FAERS Safety Report 8030569-X (Version None)
Quarter: 2012Q1

REPORT INFORMATION
  Report Type: 
  Country: None (occurrence: None)
  Receive Date: 20120109
  Receipt Date: 20111227
  Transmission Date: 20120608
  Serious: Yes (Death)
  Sender: FDA-Public Use
  Company Number: US-JNJFOC-20120101692

PATIENT
  Age: 16 Year
  Sex: Female

DRUGS (11)
  1. TRICYCLIC ANTIDEPRESSANT [Suspect]
     Indication: SUICIDE ATTEMPT
     Route: 048
  2. METOPROLOL SUCCINATE [Suspect]
     Indication: SUICIDE ATTEMPT
     Route: 048
  3. NORTRIPTYLINE HCL [Concomitant]
     Indication: PRODUCT USED FOR UNKNOWN INDICATION
     Route: 065
  4. HYDROCODONE [Concomitant]
     Indication: PRODUCT USED FOR UNKNOWN INDICATION
     Route: 065
  5. PHENAZOPYRIDINE HCL TAB [Suspect]
     Indication: SUICIDE ATTEMPT
     Route: 048
  6. OXYMORPHONE [Concomitant]
     Indication: PRODUCT USED FOR UNKNOWN INDICATION
     Route: 065
  7. AMITRIPTYLINE HCL [Concomitant]
     Indication: PRODUCT USED FOR UNKNOWN INDICATION
     Route: 065
  8. MORPHINE [Concomitant]
     Indication: PRODUCT USED FOR UNKNOWN INDICATION
     Route: 065
  9. ACETAMINOPHEN W/ CODEINE [Suspect]
     Indication: SUICIDE ATTEMPT
     Route: 048
  10. CIPROFLOXACIN [Suspect]
     Indication: SUICIDE ATTEMPT
     Route: 048
  11. OXYCODONE HCL [Concomitant]
     Indication: PRODUCT USED FOR UNKNOWN INDICATION
     Route: 065

REACTIONS (2)
  - CARDIO-RESPIRATORY ARREST [None]
  - TOXICITY TO VARIOUS AGENTS [None]
